FAERS Safety Report 7152893-5 (Version None)
Quarter: 2010Q4

REPORT INFORMATION
  Report Type: 
  Country: None (occurrence: None)
  Receive Date: 20101213
  Receipt Date: 20101119
  Transmission Date: 20110411
  Serious: Yes (Other)
  Sender: FDA-Public Use
  Company Number: US-PFIZER INC-2010155960

PATIENT
  Sex: Female

DRUGS (2)
  1. ROBITUSSIN NIGHT TIME COUGH COLD AND FLU [Suspect]
     Indication: COUGH
     Dosage: 4 TEASPOON
     Route: 048
     Dates: start: 20101101, end: 20101101
  2. ROBITUSSIN NIGHT TIME COUGH COLD AND FLU [Suspect]
     Indication: NASOPHARYNGITIS

REACTIONS (1)
  - DYSPNOEA [None]
